FAERS Safety Report 11141326 (Version 1)
Quarter: 2015Q2

REPORT INFORMATION
  Report Type: Spontaneous
  Country: US (occurrence: US)
  Receive Date: 20150527
  Receipt Date: 20150527
  Transmission Date: 20150821
  Serious: Yes (Hospitalization)
  Sender: FDA-Public Use
  Company Number: US-MALLINCKRODT-QSC-2014-0643

PATIENT
  Age: 43 Year
  Sex: Female
  Weight: 63.49 kg

DRUGS (1)
  1. H.P. ACTHAR [Suspect]
     Active Substance: CORTICOTROPIN
     Indication: RENAL DISORDER
     Dosage: 1 ML, BIW
     Dates: start: 20140818, end: 20140827

REACTIONS (3)
  - Pancreatitis [Not Recovered/Not Resolved]
  - Weight increased [Recovering/Resolving]
  - Abdominal distension [Not Recovered/Not Resolved]

NARRATIVE: CASE EVENT DATE: 2014
